FAERS Safety Report 8014608-8 (Version None)
Quarter: 2011Q4

REPORT INFORMATION
  Report Type: 
  Country: None (occurrence: None)
  Receive Date: 20111229
  Receipt Date: 20111222
  Transmission Date: 20120403
  Serious: Yes (Other)
  Sender: FDA-Public Use
  Company Number: US-ABBOTT-11P-163-0873356-00

PATIENT
  Sex: Female
  Weight: 68.554 kg

DRUGS (9)
  1. HUMIRA [Suspect]
     Indication: ARTHRITIS
     Route: 058
     Dates: start: 20081003, end: 20090701
  2. METHOTREXATE [Concomitant]
     Indication: ARTHRITIS
  3. ARAVA [Concomitant]
     Indication: PRODUCT USED FOR UNKNOWN INDICATION
  4. HUMIRA [Suspect]
     Indication: POLYARTHRITIS
  5. SINEMET [Suspect]
     Indication: TREMOR
     Dosage: 50/200 QID
     Dates: start: 20110601
  6. PREDNISONE TAB [Concomitant]
     Indication: PRODUCT USED FOR UNKNOWN INDICATION
     Dosage: ON AND OFF
  7. HUMIRA [Suspect]
     Indication: LEUKOCYTE ANTIGEN B-27 POSITIVE
  8. FOLIC ACID [Concomitant]
     Indication: ARTHRITIS
  9. VITAMIN TAB [Concomitant]
     Indication: VITAMIN SUPPLEMENTATION

REACTIONS (6)
  - PARKINSON'S DISEASE [None]
  - NEUROPATHY PERIPHERAL [None]
  - FEELING JITTERY [None]
  - BLOOD TEST ABNORMAL [None]
  - WEIGHT DECREASED [None]
  - INJECTION SITE PAIN [None]
